FAERS Safety Report 6290057-8 (Version None)
Quarter: 2009Q3

REPORT INFORMATION
  Report Type: 
  Country: None (occurrence: None)
  Receive Date: 20090730
  Receipt Date: 20081104
  Transmission Date: 20100115
  Serious: No
  Sender: FDA-Public Use
  Company Number: US-BRISTOL-MYERS SQUIBB COMPANY-14395271

PATIENT
  Age: 80 Year
  Sex: Male
  Weight: 85 kg

DRUGS (3)
  1. WARFARIN SODIUM [Suspect]
     Indication: THROMBOSIS
     Dosage: TABLET. ABOUT 2 TO 3 MONTHS
  2. XANAX [Concomitant]
  3. HYDROMORPHONE HCL [Concomitant]

REACTIONS (3)
  - MALAISE [None]
  - PRURITUS [None]
  - RASH [None]
